FAERS Safety Report 25733259 (Version 1)
Quarter: 2025Q3

REPORT INFORMATION
  Report Type: Spontaneous
  Country: US (occurrence: US)
  Receive Date: 20250828
  Receipt Date: 20250828
  Transmission Date: 20251021
  Serious: No
  Sender: CIPLA
  Company Number: US-CIPLA LTD.-2024US08189

PATIENT

DRUGS (8)
  1. MELOXICAM [Suspect]
     Active Substance: MELOXICAM
     Indication: Osteoarthritis
     Dosage: 7.5 MILLIGRAM, QD
     Route: 048
     Dates: start: 2017
  2. MELOXICAM [Suspect]
     Active Substance: MELOXICAM
     Dosage: 7.5 MILLIGRAM, BID
     Route: 048
  3. LOPERAMIDE HYDROCHLORIDE [Concomitant]
     Active Substance: LOPERAMIDE HYDROCHLORIDE
     Indication: Diarrhoea
     Route: 065
     Dates: start: 2020
  4. OMEPRAZOLE [Concomitant]
     Active Substance: OMEPRAZOLE
     Indication: Abdominal pain upper
     Dosage: 20 MILLIGRAM, QD
     Route: 065
  5. TYLENOL [Concomitant]
     Active Substance: ACETAMINOPHEN
     Indication: Back pain
     Route: 065
     Dates: start: 20240528
  6. TYLENOL [Concomitant]
     Active Substance: ACETAMINOPHEN
     Indication: Pain
     Route: 065
  7. METOPROLOL [Concomitant]
     Active Substance: METOPROLOL
     Indication: Palpitations
     Route: 065
  8. LORATADINE [Concomitant]
     Active Substance: LORATADINE
     Indication: Hypersensitivity
     Dosage: 10 MILLIGRAM, QD (ALWAYS TAKE IT IN THE MORNING)
     Route: 065

REACTIONS (7)
  - Musculoskeletal pain [Recovered/Resolved]
  - Body height decreased [Unknown]
  - Osteoarthritis [Recovered/Resolved]
  - Adverse event [Recovered/Resolved]
  - Intentional product use issue [Unknown]
  - Abdominal pain upper [Recovered/Resolved]
  - Diarrhoea [Recovered/Resolved]

NARRATIVE: CASE EVENT DATE: 20170101
